FAERS Safety Report 26087511 (Version 1)
Quarter: 2025Q4

REPORT INFORMATION
  Report Type: Spontaneous
  Country: US (occurrence: US)
  Receive Date: 20251125
  Receipt Date: 20251125
  Transmission Date: 20260119
  Serious: No
  Sender: ROCHE
  Company Number: US-ROCHE-10000433609

PATIENT
  Age: 77 Year
  Sex: Female
  Weight: 81.65 kg

DRUGS (5)
  1. ACTEMRA [Suspect]
     Active Substance: TOCILIZUMAB
     Indication: Connective tissue disorder
     Route: 058
     Dates: start: 202510
  2. CELLCEPT [Suspect]
     Active Substance: MYCOPHENOLATE MOFETIL
     Indication: Connective tissue disorder
     Dosage: 2 TABLETS IN THE MORNING AND 2 TABLETS AT NIGHT
     Route: 048
  3. LOSARTAN [Concomitant]
     Active Substance: LOSARTAN
     Indication: Hypertension
     Route: 048
  4. CITALOPRAM [Concomitant]
     Active Substance: CITALOPRAM
     Indication: Depression
     Route: 048
  5. ZETIA [Concomitant]
     Active Substance: EZETIMIBE
     Indication: Blood cholesterol increased
     Route: 048

REACTIONS (4)
  - Product storage error [Unknown]
  - Off label use [Unknown]
  - Device defective [Unknown]
  - No adverse event [Unknown]

NARRATIVE: CASE EVENT DATE: 20251001
